FAERS Safety Report 23913890 (Version 5)
Quarter: 2024Q3

REPORT INFORMATION
  Report Type: Spontaneous
  Country: FR (occurrence: FR)
  Receive Date: 20240529
  Receipt Date: 20240906
  Transmission Date: 20241017
  Serious: Yes (Hospitalization, Other)
  Sender: ASTELLAS
  Company Number: FR-ASTELLAS-2024US014285

PATIENT
  Age: 67 Year
  Sex: Male
  Weight: 65 kg

DRUGS (17)
  1. PADCEV [Suspect]
     Active Substance: ENFORTUMAB VEDOTIN-EJFV
     Indication: Transitional cell carcinoma
     Dosage: 85 MG, CYCLIC (CYCLE 1 DAY 1, 1.25 MG/KG)
     Route: 042
     Dates: start: 20240326
  2. PADCEV [Suspect]
     Active Substance: ENFORTUMAB VEDOTIN-EJFV
     Dosage: 85 MG, CYCLIC (CYCLE 1 DAY 8, 1.25 MG/KG
     Route: 042
     Dates: start: 20240403
  3. PADCEV [Suspect]
     Active Substance: ENFORTUMAB VEDOTIN-EJFV
     Dosage: 85 MG, CYCLIC (CYCLE 1 DAY 15, 1.25 MG/KG)
     Route: 042
     Dates: start: 20240410
  4. PADCEV [Suspect]
     Active Substance: ENFORTUMAB VEDOTIN-EJFV
     Dosage: 65 MG, CYCLIC (CYCLE 2 DAY 1, 1 MG/KG)
     Route: 042
     Dates: start: 20240430
  5. PADCEV [Suspect]
     Active Substance: ENFORTUMAB VEDOTIN-EJFV
     Dosage: 65 MG, CYCLIC (CYCLE 2 DAY 8, 1 MG/KG)
     Route: 042
     Dates: start: 20240508
  6. PADCEV [Suspect]
     Active Substance: ENFORTUMAB VEDOTIN-EJFV
     Dosage: 50 MG, CYCLIC (CYCLE 2 DAY 15)
     Route: 042
     Dates: start: 20240515
  7. PADCEV [Suspect]
     Active Substance: ENFORTUMAB VEDOTIN-EJFV
     Dosage: 50 MG, CYCLIC (CYCLE 3 DAY 1)
     Route: 042
     Dates: start: 20240604
  8. PADCEV [Suspect]
     Active Substance: ENFORTUMAB VEDOTIN-EJFV
     Dosage: 50 MG, CYCLIC (CYCLE 3 DAY 8)
     Route: 042
     Dates: start: 20240611
  9. ALLOPURINOL [Concomitant]
     Active Substance: ALLOPURINOL
     Indication: Product used for unknown indication
     Dosage: 1 DF, ONCE DAILY (IN THE MORNING)
     Route: 065
  10. ALPRAZOLAM [Concomitant]
     Active Substance: ALPRAZOLAM
     Indication: Product used for unknown indication
     Dosage: 1 MG, ONCE DAILY (EVENING)
     Route: 065
  11. SODIUM BICARBONATE [Concomitant]
     Active Substance: SODIUM BICARBONATE
     Indication: Product used for unknown indication
     Dosage: 1 DF, TWICE DAILY
     Route: 065
  12. NEORAL [Concomitant]
     Active Substance: CYCLOSPORINE
     Indication: Product used for unknown indication
     Dosage: 1 DF, TWICE DAILY
     Route: 065
  13. Dexeryl [Concomitant]
     Indication: Product used for unknown indication
     Dosage: UNK UNK, OTHER (1 APPLICATION 1 TO 2 TIMES A DAY ON AREAS OF DRY SKIN)
     Route: 065
  14. MAGNESIUM PIDOLATE [Concomitant]
     Active Substance: MAGNESIUM PIDOLATE
     Indication: Product used for unknown indication
     Dosage: 2 DF, TWICE DAILY (2 VIALS THE MORNING AND THE EVENING)
     Route: 065
  15. PREDNISOLONE [Concomitant]
     Active Substance: PREDNISOLONE
     Indication: Product used for unknown indication
     Dosage: 1 DF, ONCE DAILY (1 TABLET THE MORNING)
     Route: 065
  16. ZOPICLONE [Concomitant]
     Active Substance: ZOPICLONE
     Indication: Product used for unknown indication
     Dosage: 1 DF, ONCE DAILY (AT BEDTIME)
     Route: 065
  17. DOLIPRANE [Concomitant]
     Active Substance: ACETAMINOPHEN
     Indication: Pain
     Dosage: 1 DF, OTHER (1 TABLET IF PAIN)
     Route: 065

REACTIONS (5)
  - Neutropenic infection [Recovered/Resolved]
  - Toxic skin eruption [Recovered/Resolved]
  - Febrile neutropenia [Recovered/Resolved]
  - Neuropathy peripheral [Not Recovered/Not Resolved]
  - Off label use [Unknown]

NARRATIVE: CASE EVENT DATE: 20240403
